FAERS Safety Report 5895689-4 (Version None)
Quarter: 2008Q3

REPORT INFORMATION
  Report Type: 
  Country: None (occurrence: None)
  Receive Date: 20080924
  Receipt Date: 20071108
  Transmission Date: 20090109
  Serious: Yes (Hospitalization)
  Sender: FDA-Public Use
  Company Number: US-BAYER-200714431BWH

PATIENT
  Age: 69 Year
  Sex: Female

DRUGS (3)
  1. CIPRO [Suspect]
     Indication: CYSTITIS
  2. VICODIN [Suspect]
     Indication: CYSTITIS
  3. COPAXONE [Concomitant]
     Indication: MULTIPLE SCLEROSIS
     Dates: start: 20070817

REACTIONS (1)
  - HYPERSENSITIVITY [None]
